FAERS Safety Report 17736792 (Version 1)
Quarter: 2020Q2

REPORT INFORMATION
  Report Type: Spontaneous
  Country: IT (occurrence: IT)
  Receive Date: 20200502
  Receipt Date: 20200502
  Transmission Date: 20200714
  Serious: Yes (Hospitalization)
  Sender: FDA-Public Use
  Company Number: IT-SUN PHARMACEUTICAL INDUSTRIES LTD-2020R1-245520

PATIENT
  Age: 39 Year
  Sex: Female

DRUGS (2)
  1. PROPYLTHIOURACIL. [Suspect]
     Active Substance: PROPYLTHIOURACIL
     Dosage: 50 MILLIGRAM, DAILY
     Route: 065
  2. PROPYLTHIOURACIL. [Suspect]
     Active Substance: PROPYLTHIOURACIL
     Indication: BASEDOW^S DISEASE
     Dosage: 200 MILLIGRAM, DAILY
     Route: 065

REACTIONS (3)
  - Live birth [Unknown]
  - Condition aggravated [Unknown]
  - Exposure during pregnancy [Unknown]
